FAERS Safety Report 8303599-8 (Version None)
Quarter: 2012Q2

REPORT INFORMATION
  Report Type: 
  Country: None (occurrence: None)
  Receive Date: 20120423
  Receipt Date: 20120412
  Transmission Date: 20120825
  Serious: Yes (Hospitalization)
  Sender: FDA-Public Use
  Company Number: JP-CELGENEUS-087-21880-12041203

PATIENT
  Sex: Male

DRUGS (24)
  1. REVLIMID [Suspect]
     Indication: MULTIPLE MYELOMA
     Dosage: 25 MILLIGRAM
     Route: 048
     Dates: start: 20110119, end: 20110127
  2. DEXAMETHASONE ACETATE [Suspect]
     Dosage: 8 MILLIGRAM
     Route: 048
     Dates: start: 20110525, end: 20110525
  3. DIOVAN [Concomitant]
     Indication: HYPERTENSION
     Dosage: 80 MILLIGRAM
     Route: 048
     Dates: start: 20100809
  4. ZANTAC [Concomitant]
     Indication: PROPHYLAXIS
     Dosage: 300 MILLIGRAM
     Route: 048
     Dates: start: 20100809
  5. PURSENNID [Concomitant]
     Dosage: 24 MILLIGRAM
     Route: 048
     Dates: start: 20110526
  6. DEXAMETHASONE ACETATE [Suspect]
     Dosage: 8 MILLIGRAM
     Route: 048
     Dates: start: 20110622, end: 20110622
  7. NORVASC [Concomitant]
     Indication: HYPERTENSION
     Dosage: 2.5 MILLIGRAM
     Route: 048
     Dates: start: 20110118, end: 20110210
  8. DEXAMETHASONE ACETATE [Suspect]
     Dosage: 8 MILLIGRAM
     Route: 048
     Dates: start: 20110615, end: 20110615
  9. MAGMITT [Concomitant]
     Dosage: 990 MILLIGRAM
     Route: 048
     Dates: start: 20100823, end: 20110702
  10. MIGLITOL [Concomitant]
     Indication: DIABETES MELLITUS
     Dosage: 150 MILLIGRAM
     Route: 048
     Dates: start: 20110314, end: 20110327
  11. FAROM [Concomitant]
     Indication: PROPHYLAXIS
     Dosage: 400 MILLIGRAM
     Route: 048
     Dates: start: 20110428, end: 20110504
  12. DEXAMETHASONE ACETATE [Suspect]
     Dosage: 8 MILLIGRAM
     Route: 048
     Dates: start: 20110126, end: 20110126
  13. DEXAMETHASONE ACETATE [Suspect]
     Dosage: 8 MILLIGRAM
     Route: 048
     Dates: start: 20110518, end: 20110518
  14. ASPIRIN [Concomitant]
     Indication: PROPHYLAXIS
     Dosage: 100 MILLIGRAM
     Route: 048
     Dates: start: 20110118
  15. MARZULENE-S [Concomitant]
     Indication: PROPHYLAXIS
     Dosage: 1.5 GRAM
     Route: 048
     Dates: start: 20100823
  16. REVLIMID [Suspect]
     Dosage: 25 MILLIGRAM
     Route: 048
     Dates: start: 20110608, end: 20110628
  17. DEXAMETHASONE ACETATE [Suspect]
     Dosage: 8 MILLIGRAM
     Route: 048
     Dates: start: 20110608, end: 20110608
  18. REVLIMID [Suspect]
     Dosage: 15 MILLIGRAM
     Route: 048
     Dates: start: 20110511, end: 20110531
  19. DEXAMETHASONE ACETATE [Suspect]
     Indication: MULTIPLE MYELOMA
     Dosage: 8 MILLIGRAM
     Route: 048
     Dates: start: 20110119, end: 20110119
  20. DEXAMETHASONE ACETATE [Suspect]
     Dosage: 8 MILLIGRAM
     Route: 048
     Dates: start: 20110511, end: 20110511
  21. CLONAZEPAM [Concomitant]
     Dosage: .5 MILLIGRAM
     Route: 048
     Dates: start: 20100823, end: 20110509
  22. LANDEL [Concomitant]
     Indication: HYPERTENSION
     Dosage: 20 MILLIGRAM
     Route: 048
     Dates: start: 20110105, end: 20110119
  23. ALLOPURINOL [Concomitant]
     Dosage: 100 MILLIGRAM
     Route: 048
     Dates: start: 20110105, end: 20110119
  24. METFORMIN HCL [Concomitant]
     Indication: DIABETES MELLITUS
     Dosage: 500 MILLIGRAM
     Route: 048
     Dates: start: 20110426

REACTIONS (5)
  - DIARRHOEA [None]
  - URINARY RETENTION [None]
  - INSOMNIA [None]
  - PROSTATITIS [None]
  - RASH [None]
